FAERS Safety Report 5426404-6 (Version None)
Quarter: 2007Q3

REPORT INFORMATION
  Report Type: 
  Country: None (occurrence: None)
  Receive Date: 20070731
  Receipt Date: 20070420
  Transmission Date: 20080115
  Serious: No
  Sender: FDA-Public Use
  Company Number: US200704004617

PATIENT
  Age: 77 Year
  Sex: Female
  Weight: 86.2 kg

DRUGS (3)
  1. BYETTA [Suspect]
     Dosage: 5 UG, 2/D, SUBCUTANEOUS
     Route: 058
     Dates: start: 20070413
  2. EXENATIDE PEN, DISPOSABLE DEVICE (EXENATIDE PEN) PEN, DISPOSABLE [Concomitant]
  3. METFORMIN HCL [Concomitant]

REACTIONS (4)
  - ABASIA [None]
  - CONFUSIONAL STATE [None]
  - FALL [None]
  - FATIGUE [None]
